FAERS Safety Report 9747377 (Version 2)
Quarter: 2014Q1

REPORT INFORMATION
  Report Type: Spontaneous
  Country: US (occurrence: US)
  Receive Date: 20131212
  Receipt Date: 20140106
  Transmission Date: 20141002
  Serious: Yes (Other)
  Sender: FDA-Public Use
  Company Number: US-BIOGENIDEC-2013BI117761

PATIENT
  Sex: Female

DRUGS (8)
  1. AVONEX [Suspect]
     Indication: MULTIPLE SCLEROSIS
     Route: 030
     Dates: start: 20020128, end: 2004
  2. AVONEX [Suspect]
     Indication: MULTIPLE SCLEROSIS
     Route: 030
     Dates: start: 20110603, end: 2012
  3. AVONEX [Suspect]
     Indication: MULTIPLE SCLEROSIS
     Route: 030
     Dates: start: 2012
  4. LASIX [Concomitant]
     Indication: CARDIAC DISORDER
  5. LASIX [Concomitant]
     Indication: FLUID RETENTION
  6. LISINOPRIL [Concomitant]
     Indication: CARDIAC DISORDER
  7. LISINOPRIL [Concomitant]
     Indication: HYPERTENSION
  8. COREG [Concomitant]
     Indication: CARDIAC DISORDER

REACTIONS (3)
  - Ejection fraction decreased [Unknown]
  - Coronary artery disease [Unknown]
  - Fatigue [Not Recovered/Not Resolved]
